FAERS Safety Report 4391804-2 (Version None)
Quarter: 2004Q3

REPORT INFORMATION
  Report Type: 
  Country: None (occurrence: None)
  Receive Date: 20040701
  Receipt Date: 20040621
  Transmission Date: 20050211
  Serious: Yes (Death, Hospitalization, Other)
  Sender: FDA-Public Use
  Company Number: 2004-06-1914

PATIENT
  Age: 70 Year
  Sex: Male

DRUGS (1)
  1. TEMODAR [Suspect]
     Indication: BRAIN NEOPLASM
     Dosage: 300 MGG ORAL
     Route: 048

REACTIONS (2)
  - CONVULSION [None]
  - METASTATIC NEOPLASM [None]
